FAERS Safety Report 11756530 (Version 2)
Quarter: 2016Q1

REPORT INFORMATION
  Report Type: Other
  Country: GB (occurrence: GB)
  Receive Date: 20151119
  Receipt Date: 20160105
  Transmission Date: 20160525
  Serious: No
  Sender: FDA-Public Use
  Company Number: GB-TAKEDA-2015TUS015980

PATIENT
  Age: 48 Year
  Sex: Female
  Weight: 53.5 kg

DRUGS (5)
  1. ENTYVIO [Suspect]
     Active Substance: VEDOLIZUMAB
     Indication: CROHN^S DISEASE
     Dosage: 300 MG, UNK
     Route: 042
     Dates: start: 20151022
  2. MIRTAZAPINE. [Concomitant]
     Active Substance: MIRTAZAPINE
  3. LYMECYCLINE [Concomitant]
     Active Substance: LYMECYCLINE
  4. ZOPICLONE [Concomitant]
     Active Substance: ZOPICLONE
  5. LANSOPRAZOLE. [Concomitant]
     Active Substance: LANSOPRAZOLE

REACTIONS (4)
  - Pharyngeal disorder [Not Recovered/Not Resolved]
  - Mouth cyst [Unknown]
  - Alopecia [Not Recovered/Not Resolved]
  - Oropharyngeal pain [Unknown]

NARRATIVE: CASE EVENT DATE: 20151023
